FAERS Safety Report 24159991 (Version 2)
Quarter: 2024Q3

REPORT INFORMATION
  Report Type: Report from Study
  Country: CA (occurrence: CA)
  Receive Date: 20240801
  Receipt Date: 20240830
  Transmission Date: 20241016
  Serious: Yes (Death)
  Sender: ABBVIE
  Company Number: CA-ABBVIE-5861078

PATIENT
  Sex: Male

DRUGS (2)
  1. BOTOX [Suspect]
     Active Substance: ONABOTULINUMTOXINA
     Indication: Muscle spasticity
     Dosage: TIME INTERVAL: AS NECESSARY: EVERY THREE MONTHS
     Route: 030
     Dates: start: 20221222, end: 20221222
  2. BOTOX [Suspect]
     Active Substance: ONABOTULINUMTOXINA
     Indication: Muscle spasticity
     Dosage: TIME INTERVAL: AS NECESSARY: EVERY THREE MONTHS
     Route: 030
     Dates: start: 20230622, end: 20230622

REACTIONS (2)
  - Brain neoplasm malignant [Fatal]
  - Glioma [Fatal]
